FAERS Safety Report 7958919-0 (Version None)
Quarter: 2011Q4

REPORT INFORMATION
  Report Type: 
  Country: None (occurrence: None)
  Receive Date: 20111130
  Receipt Date: 20111117
  Transmission Date: 20120403
  Serious: Yes (Other)
  Sender: FDA-Public Use
  Company Number: TPA2011A07777

PATIENT
  Age: 89 Year
  Sex: Male
  Weight: 56.6996 kg

DRUGS (1)
  1. PREVACID [Suspect]
     Indication: DYSPEPSIA
     Dosage: 30 MG, 2 IN 1 D, PER ORAL
     Route: 048
     Dates: start: 19970101, end: 20110101

REACTIONS (6)
  - CARDIAC DISORDER [None]
  - CONDITION AGGRAVATED [None]
  - ARTHRITIS [None]
  - GAIT DISTURBANCE [None]
  - DRUG INEFFECTIVE [None]
  - LOSS OF CONSCIOUSNESS [None]
